FAERS Safety Report 4664896-0 (Version None)
Quarter: 2005Q2

REPORT INFORMATION
  Report Type: 
  Country: None (occurrence: None)
  Receive Date: 20050517
  Receipt Date: 20050429
  Transmission Date: 20051028
  Serious: Yes (Hospitalization)
  Sender: FDA-Public Use
  Company Number: DE_050415806

PATIENT
  Age: 62 Year
  Sex: Male
  Weight: 58 kg

DRUGS (7)
  1. GEMZAR [Suspect]
     Indication: PANCREATIC CARCINOMA
     Dosage: 1000 MG/M2
     Dates: start: 20050407, end: 20050429
  2. DIPYRONE TAB [Concomitant]
  3. TRAMAL LONG (TRAMADOL HYDROCHLORIDE) [Concomitant]
  4. KREON (PANCREATIN) [Concomitant]
  5. PROTAPHANE (INSULIN HUMAN INJECTION, ISOPHANE) [Concomitant]
  6. NAVOBAN (TROPISETRON HYDROCHLORIDE) [Concomitant]
  7. DEXAMETHASONE [Concomitant]

REACTIONS (3)
  - FATIGUE [None]
  - NASOPHARYNGITIS [None]
  - RELAPSING FEVER [None]
